FAERS Safety Report 21042400 (Version 1)
Quarter: 2022Q3

REPORT INFORMATION
  Report Type: Spontaneous
  Country: US (occurrence: None)
  Receive Date: 20220701
  Receipt Date: 20220701
  Transmission Date: 20221027
  Serious: No
  Sender: FDA-Public Use
  Company Number: None

PATIENT
  Age: 58 Year
  Sex: Female

DRUGS (1)
  1. MEMANTINE HYDROCHLORIDE [Suspect]
     Active Substance: MEMANTINE HYDROCHLORIDE
     Indication: Product used for unknown indication
     Dosage: FREQUENCY : DAILY;?
     Route: 048
     Dates: start: 202206, end: 202206

REACTIONS (6)
  - Urticaria [None]
  - Pruritus [None]
  - Rash [None]
  - Tremor [None]
  - Restlessness [None]
  - Insomnia [None]

NARRATIVE: CASE EVENT DATE: 20220607
